FAERS Safety Report 20704692 (Version 1)
Quarter: 2022Q2

REPORT INFORMATION
  Report Type: Spontaneous
  Country: US (occurrence: None)
  Receive Date: 20220412
  Receipt Date: 20220412
  Transmission Date: 20220721
  Serious: Yes (Other)
  Sender: FDA-Public Use
  Company Number: None

PATIENT
  Age: 43 Year
  Sex: Female
  Weight: 79.65 kg

DRUGS (14)
  1. MIRTAZAPINE [Suspect]
     Active Substance: MIRTAZAPINE
     Indication: Major depression
     Dosage: OTHER QUANTITY : 1 TABLET(S);?FREQUENCY : AT BEDTIME;?
     Route: 048
     Dates: start: 20210805
  2. AIMOVIG [Concomitant]
     Active Substance: ERENUMAB-AOOE
  3. rizathriptan [Concomitant]
  4. MEMANTINE [Concomitant]
  5. MIRTAZAPINE [Concomitant]
     Active Substance: MIRTAZAPINE
  6. flovent discus [Concomitant]
  7. LEVALBUTEROL [Concomitant]
     Active Substance: LEVALBUTEROL
  8. CETIRIZINE [Concomitant]
  9. VITAMIN D3 [Concomitant]
     Active Substance: CHOLECALCIFEROL
  10. mutivitamin [Concomitant]
  11. COENZYME Q10 [Concomitant]
     Active Substance: DIETARY SUPPLEMENT\UBIDECARENONE
  12. DOCUSATE SODIUM [Concomitant]
  13. TUMS [Concomitant]
     Active Substance: CALCIUM CARBONATE
  14. OTC pain pills or creams [Concomitant]

REACTIONS (10)
  - Weight increased [None]
  - Constipation [None]
  - Back pain [None]
  - Bedridden [None]
  - Dizziness [None]
  - Tremor [None]
  - Nausea [None]
  - Post viral fatigue syndrome [None]
  - Chronic fatigue syndrome [None]
  - Loss of personal independence in daily activities [None]

NARRATIVE: CASE EVENT DATE: 20211001
